FAERS Safety Report 10468798 (Version 9)
Quarter: 2014Q4

REPORT INFORMATION
  Report Type: Report from Study
  Country: CA (occurrence: CA)
  Receive Date: 20140923
  Receipt Date: 20141218
  Transmission Date: 20150528
  Serious: Yes (Hospitalization, Other)
  Sender: FDA-Public Use
  Company Number: CA-ROCHE-1465285

PATIENT
  Age: 61 Year
  Sex: Male

DRUGS (2)
  1. FRAGMIN [Concomitant]
     Active Substance: DALTEPARIN SODIUM
  2. AVASTIN [Suspect]
     Active Substance: BEVACIZUMAB
     Indication: GLIOBLASTOMA
     Route: 042
     Dates: start: 20140910, end: 20141118

REACTIONS (9)
  - Blindness [Not Recovered/Not Resolved]
  - Epistaxis [Unknown]
  - Prostatic disorder [Unknown]
  - Dehydration [Unknown]
  - Asthenia [Unknown]
  - Skin ulcer [Unknown]
  - Drug ineffective [Unknown]
  - Urine flow decreased [Unknown]
  - Malignant neoplasm progression [Unknown]

NARRATIVE: CASE EVENT DATE: 201410
